FAERS Safety Report 19481713 (Version 1)
Quarter: 2021Q3

REPORT INFORMATION
  Report Type: Spontaneous
  Country: JP (occurrence: JP)
  Receive Date: 20210701
  Receipt Date: 20210701
  Transmission Date: 20211014
  Serious: Yes (Hospitalization)
  Sender: FDA-Public Use
  Company Number: JP-TEVA-2021-JP-1928646

PATIENT
  Sex: Male

DRUGS (5)
  1. ALPROSTADIL. [Suspect]
     Active Substance: ALPROSTADIL
     Indication: NEWBORN PERSISTENT PULMONARY HYPERTENSION
     Route: 050
  2. NITRIC OXIDE. [Suspect]
     Active Substance: NITRIC OXIDE
     Indication: NEWBORN PERSISTENT PULMONARY HYPERTENSION
     Route: 065
  3. FENTANYL. [Suspect]
     Active Substance: FENTANYL
     Indication: NEWBORN PERSISTENT PULMONARY HYPERTENSION
     Route: 065
  4. MIDAZOLAM. [Suspect]
     Active Substance: MIDAZOLAM
     Indication: NEWBORN PERSISTENT PULMONARY HYPERTENSION
     Dosage: BOLUS INJECTION
     Route: 065
  5. ROCURONIUM [Suspect]
     Active Substance: ROCURONIUM BROMIDE
     Indication: NEWBORN PERSISTENT PULMONARY HYPERTENSION
     Route: 065

REACTIONS (2)
  - Harlequin skin reaction [Not Recovered/Not Resolved]
  - Drug ineffective [Unknown]
